FAERS Safety Report 9237924 (Version 3)
Quarter: 2013Q2

REPORT INFORMATION
  Report Type: Spontaneous
  Country: IT (occurrence: None)
  Receive Date: 20130415
  Receipt Date: 20130509
  Transmission Date: 20140414
  Serious: No
  Sender: FDA-Public Use
  Company Number: ACO_35467_2013

PATIENT
  Age: 44 Year
  Sex: Female

DRUGS (2)
  1. FAMPYRA [Suspect]
     Indication: MULTIPLE SCLEROSIS
     Route: 048
     Dates: start: 20130207, end: 20130220
  2. BACLOFEN (BACLOFEN) (BACLOFEN) [Concomitant]

REACTIONS (4)
  - Hyperhidrosis [None]
  - Tachycardia [None]
  - Vertigo [None]
  - Off label use [None]
